FAERS Safety Report 5874107-6 (Version None)
Quarter: 2008Q3

REPORT INFORMATION
  Report Type: 
  Country: None (occurrence: None)
  Receive Date: 20080908
  Receipt Date: 20080825
  Transmission Date: 20090109
  Serious: Yes (Other)
  Sender: FDA-Public Use
  Company Number: GB-ROCHE-583532

PATIENT
  Age: 76 Year
  Sex: Female

DRUGS (2)
  1. CAPECITABINE [Suspect]
     Dosage: DOSE REDUCED CAPECITABINE
     Route: 065
  2. CAPECITABINE [Suspect]
     Dosage: DOSE INCREASED
     Route: 065

REACTIONS (2)
  - ARTHRITIS BACTERIAL [None]
  - LARGE INTESTINE PERFORATION [None]
